FAERS Safety Report 7946791-4 (Version None)
Quarter: 2011Q4

REPORT INFORMATION
  Report Type: 
  Country: None (occurrence: None)
  Receive Date: 20111129
  Receipt Date: 20111122
  Transmission Date: 20120403
  Serious: Yes (Hospitalization, Other)
  Sender: FDA-Public Use
  Company Number: BR-B.I. PHARMACEUTICALS,INC./RIDGEFIELD-2011-BR-01264BR

PATIENT
  Age: 77 Year
  Sex: Female

DRUGS (5)
  1. ASPIRIN [Concomitant]
  2. PRADAXA [Suspect]
     Indication: CEREBROVASCULAR ACCIDENT PROPHYLAXIS
     Dates: start: 20110801
  3. ANTICOAGULANT [Concomitant]
     Indication: ANTICOAGULANT THERAPY
  4. MEDICINE FOR HYPOTHYROIDISM [Concomitant]
     Indication: HYPOTHYROIDISM
  5. ATENOLOL [Concomitant]

REACTIONS (4)
  - INFARCTION [None]
  - PALLOR [None]
  - GASTRIC HAEMORRHAGE [None]
  - DIVERTICULITIS [None]
